FAERS Safety Report 19592546 (Version 5)
Quarter: 2022Q3

REPORT INFORMATION
  Report Type: Report from Study
  Country: US (occurrence: None)
  Receive Date: 20210722
  Receipt Date: 20220906
  Transmission Date: 20221026
  Serious: Yes (Hospitalization, Other)
  Sender: FDA-Public Use
  Company Number: US-ROCHE-2812377

PATIENT
  Age: 68 Year
  Sex: Male
  Weight: 95.6 kg

DRUGS (3)
  1. OBINUTUZUMAB [Suspect]
     Active Substance: OBINUTUZUMAB
     Indication: Chronic lymphocytic leukaemia
     Dosage: ON DAY 1, CYCLE 1?LAST ADMINISTERED DATE 09/APR/2021. TOTAL DOSE ADMINISTERED THIS COURSE (DOSE): 0M
     Route: 042
     Dates: start: 20201117
  2. VENETOCLAX [Suspect]
     Active Substance: VENETOCLAX
     Indication: Chronic lymphocytic leukaemia
     Dosage: DAYS 1-7 CYCLE 3 ?LAST ADMINISTERED DATE 15/MAY/2021
     Route: 048
     Dates: start: 20201117
  3. IBRUTINIB [Suspect]
     Active Substance: IBRUTINIB
     Indication: Chronic lymphocytic leukaemia
     Dosage: ON DAYS 1-28, CYCLES 1-19 ?LAST ADMINISTERED DATE 15/MAY/2021
     Route: 048
     Dates: start: 20201117

REACTIONS (5)
  - Malignant melanoma [Not Recovered/Not Resolved]
  - Squamous cell carcinoma [Recovered/Resolved with Sequelae]
  - Pyrexia [Recovered/Resolved]
  - Sepsis [Recovered/Resolved]
  - Basal cell carcinoma [Unknown]

NARRATIVE: CASE EVENT DATE: 20210212
